FAERS Safety Report 10090909 (Version 1)
Quarter: 2014Q2

REPORT INFORMATION
  Report Type: Spontaneous
  Country: US (occurrence: US)
  Receive Date: 20140421
  Receipt Date: 20140421
  Transmission Date: 20141212
  Serious: No
  Sender: FDA-Public Use
  Company Number: US-GILEAD-2012-0063732

PATIENT
  Sex: Female

DRUGS (4)
  1. LETAIRIS [Suspect]
     Indication: COR PULMONALE CHRONIC
     Dosage: 10 MG, QD
     Route: 048
     Dates: start: 20111201
  2. TYLENOL WITH CODEINE [Suspect]
  3. REMODULIN [Concomitant]
  4. REVATIO [Concomitant]

REACTIONS (3)
  - Pain [Unknown]
  - Nausea [Unknown]
  - Dizziness [Unknown]
